FAERS Safety Report 5208625-0 (Version None)
Quarter: 2007Q1

REPORT INFORMATION
  Report Type: 
  Country: None (occurrence: None)
  Receive Date: 20070116
  Receipt Date: 20070103
  Transmission Date: 20070707
  Serious: Yes (Other)
  Sender: FDA-Public Use
  Company Number: PHNU2006DE04129

PATIENT
  Age: 24 Year
  Sex: Male
  Weight: 82.9 kg

DRUGS (7)
  1. ECSTASY [Suspect]
     Dosage: 10 DF, ONCE/SINGLE
     Route: 048
  2. ECSTASY [Suspect]
     Dosage: 10 DF, ONCE/SINGLE
     Route: 048
  3. LEPONEX [Suspect]
     Indication: SCHIZOPHRENIA
     Dosage: UP TO 400 MG/DAY
     Route: 048
     Dates: start: 20061108, end: 20061208
  4. ZYPREXA [Concomitant]
     Indication: SCHIZOPHRENIA
     Dosage: 15 MG, BID
     Route: 048
     Dates: start: 20060901, end: 20061111
  5. XIMOVAN [Concomitant]
     Indication: SLEEP DISORDER
     Dosage: 5 MG/DAY
     Route: 048
     Dates: start: 20060901, end: 20061206
  6. TAVOR [Concomitant]
     Dosage: 0.5 MG, QID
     Route: 048
     Dates: start: 20060901, end: 20061206
  7. SOLIAN [Concomitant]
     Indication: SCHIZOPHRENIA
     Dosage: 1200 MG/DAY
     Route: 048
     Dates: start: 20061018, end: 20061211

REACTIONS (6)
  - CONVULSION [None]
  - DRUG ABUSER [None]
  - DRUG INTERACTION [None]
  - PSYCHOTIC DISORDER [None]
  - SCHIZOPHRENIA [None]
  - SEROTONIN SYNDROME [None]
